FAERS Safety Report 19989603 (Version 1)
Quarter: 2021Q4

REPORT INFORMATION
  Report Type: Spontaneous
  Country: GB (occurrence: GB)
  Receive Date: 20211025
  Receipt Date: 20211025
  Transmission Date: 20220303
  Serious: Yes (Other)
  Sender: FDA-Public Use
  Company Number: None

PATIENT
  Age: 77 Year
  Sex: Female
  Weight: 63.5 kg

DRUGS (1)
  1. MYCOPHENOLATE MOFETIL [Suspect]
     Active Substance: MYCOPHENOLATE MOFETIL
     Indication: Ill-defined disorder
     Dosage: 2 GRAM DAILY;
     Route: 048
     Dates: start: 20160201

REACTIONS (4)
  - Pain [Unknown]
  - Influenza like illness [Unknown]
  - Tongue blistering [Unknown]
  - Oral mucosal blistering [Unknown]
